FAERS Safety Report 9701267 (Version 3)
Quarter: 2015Q3

REPORT INFORMATION
  Report Type: Spontaneous
  Country: US (occurrence: US)
  Receive Date: 20131121
  Receipt Date: 20150803
  Transmission Date: 20151125
  Serious: No
  Sender: FDA-Public Use
  Company Number: US-GILEAD-2008-0015907

PATIENT
  Age: 55 Year
  Sex: Male
  Weight: 121.56 kg

DRUGS (14)
  1. LYRICA [Concomitant]
     Active Substance: PREGABALIN
  2. LIPITOR [Concomitant]
     Active Substance: ATORVASTATIN CALCIUM
  3. VICODIN [Concomitant]
     Active Substance: ACETAMINOPHEN\HYDROCODONE BITARTRATE
  4. TYLENOL EX-ST [Concomitant]
  5. POTASSIUM CHLORIDE. [Concomitant]
     Active Substance: POTASSIUM CHLORIDE
  6. COREG CR [Concomitant]
     Active Substance: CARVEDILOL PHOSPHATE
  7. ZAROXOLYN [Concomitant]
     Active Substance: METOLAZONE
  8. ASPIRIN. [Concomitant]
     Active Substance: ASPIRIN
  9. DARVOCET N-100 [Concomitant]
  10. HUMULIN R [Concomitant]
     Active Substance: INSULIN HUMAN
  11. LANTUS [Concomitant]
     Active Substance: INSULIN GLARGINE
  12. CLINDAMYCIN [Concomitant]
     Active Substance: CLINDAMYCIN\CLINDAMYCIN PHOSPHATE
  13. LETAIRIS [Suspect]
     Active Substance: AMBRISENTAN
     Indication: PULMONARY ARTERIAL HYPERTENSION
     Route: 048
     Dates: start: 20080225, end: 20080328
  14. LASIX [Concomitant]
     Active Substance: FUROSEMIDE

REACTIONS (7)
  - Fatigue [Unknown]
  - Secretion discharge [Unknown]
  - Constipation [Unknown]
  - Dyspnoea [Unknown]
  - Retching [Unknown]
  - Diabetes mellitus inadequate control [Unknown]
  - Oedema [Unknown]

NARRATIVE: CASE EVENT DATE: 20080320
